FAERS Safety Report 23487704 (Version 1)
Quarter: 2024Q1

REPORT INFORMATION
  Report Type: Spontaneous
  Country: US (occurrence: None)
  Receive Date: 20240205
  Receipt Date: 20240205
  Transmission Date: 20240409
  Serious: No
  Sender: FDA-Public Use
  Company Number: None

PATIENT
  Age: 88 Year
  Sex: Female
  Weight: 45 kg

DRUGS (2)
  1. TRIAMCINOLONE [Suspect]
     Active Substance: TRIAMCINOLONE
     Dates: start: 20231201
  2. Ginseng cream [Concomitant]

REACTIONS (7)
  - Graft infection [None]
  - Hypertension [None]
  - Dizziness [None]
  - Dizziness [None]
  - Fatigue [None]
  - Vision blurred [None]
  - Pruritus [None]

NARRATIVE: CASE EVENT DATE: 20231210
